FAERS Safety Report 10080579 (Version 3)
Quarter: 2014Q3

REPORT INFORMATION
  Report Type: Spontaneous
  Country: FR (occurrence: FR)
  Receive Date: 20140416
  Receipt Date: 20140722
  Transmission Date: 20150326
  Serious: Yes (Hospitalization)
  Sender: FDA-Public Use
  Company Number: FR-ASTRAZENECA-2014SE25352

PATIENT
  Age: 821 Month
  Sex: Male
  Weight: 80 kg

DRUGS (16)
  1. OROKEN [Concomitant]
     Active Substance: CEFIXIME
     Indication: BRONCHITIS
     Dates: start: 20120823
  2. NASONEX [Concomitant]
     Active Substance: MOMETASONE FUROATE
     Dosage: 2 PULVERIZATIONS DAILY IN EACH NOSTRIL
     Dates: start: 20120917
  3. SOTALEX [Concomitant]
     Active Substance: SOTALOL
     Dosage: 40 MG MORNING AND NIGHT
     Dates: start: 20120823
  4. CORDARONE [Concomitant]
     Active Substance: AMIODARONE HYDROCHLORIDE
     Indication: ATRIAL FIBRILLATION
     Dates: start: 2003
  5. SOLUPRED [Concomitant]
     Active Substance: PREDNISOLONE
     Dosage: 3 TIMES A DAY FOR 3 DAYS
     Dates: start: 20120917
  6. CRESTOR [Suspect]
     Active Substance: ROSUVASTATIN CALCIUM
     Route: 048
     Dates: start: 20120823
  7. SOTALEX [Concomitant]
     Active Substance: SOTALOL
     Dates: start: 2007
  8. APROVEL [Suspect]
     Active Substance: IRBESARTAN
     Route: 065
     Dates: start: 20120823
  9. KARDEGIC [Concomitant]
     Active Substance: ASPIRIN LYSINE
  10. AUGMENTIN [Suspect]
     Active Substance: AMOXICILLIN\CLAVULANATE POTASSIUM
     Indication: BRONCHITIS
     Route: 065
     Dates: start: 2012, end: 2012
  11. SOLUPRED [Concomitant]
     Active Substance: PREDNISOLONE
     Dosage: 20 MG 3 TIMES A DAY FOR 3 DAYS
     Dates: start: 20120823
  12. CRESTOR [Suspect]
     Active Substance: ROSUVASTATIN CALCIUM
     Route: 048
     Dates: start: 20110907, end: 20121010
  13. APROVEL [Suspect]
     Active Substance: IRBESARTAN
     Route: 065
     Dates: start: 2005
  14. NASACORT [Concomitant]
     Active Substance: TRIAMCINOLONE ACETONIDE
     Dosage: NASACORT 2 PULVERIZATIONS DAILY IN EACH NOSTRIL FOR 1 MONTH
     Dates: start: 20120823
  15. AUGMENTIN [Suspect]
     Active Substance: AMOXICILLIN\CLAVULANATE POTASSIUM
     Indication: BRONCHITIS
     Route: 065
     Dates: start: 20120917
  16. KARDEGIC [Concomitant]
     Active Substance: ASPIRIN LYSINE
     Dates: start: 20120823

REACTIONS (2)
  - Drug-induced liver injury [Recovered/Resolved]
  - Renal failure acute [Recovered/Resolved with Sequelae]

NARRATIVE: CASE EVENT DATE: 201210
